FAERS Safety Report 22017830 (Version 1)
Quarter: 2023Q1

REPORT INFORMATION
  Report Type: Spontaneous
  Country: IT (occurrence: IT)
  Receive Date: 20230221
  Receipt Date: 20230221
  Transmission Date: 20230418
  Serious: Yes (Hospitalization, Other)
  Sender: FDA-Public Use
  Company Number: IT-BAXTER-2023BAX011682

PATIENT
  Age: 67 Year
  Sex: Male

DRUGS (10)
  1. PREDNISONE [Suspect]
     Active Substance: PREDNISONE
     Indication: Diffuse large B-cell lymphoma
     Dosage: UNK,UNKNOWN FREQ
     Route: 065
     Dates: start: 20211231, end: 20220426
  2. CISPLATIN [Suspect]
     Active Substance: CISPLATIN
     Indication: Diffuse large B-cell lymphoma
     Dosage: UNK,UNKNOWN FREQ
     Route: 065
     Dates: start: 20220901, end: 20220927
  3. DEXAMETHASONE [Suspect]
     Active Substance: DEXAMETHASONE
     Indication: Diffuse large B-cell lymphoma
     Dosage: UNK,UNKNOWN FREQ
     Route: 065
     Dates: start: 20220901, end: 20220927
  4. CYTARABINE [Suspect]
     Active Substance: CYTARABINE
     Indication: Diffuse large B-cell lymphoma
     Dosage: UNK,UNKNOWN FREQ
     Route: 065
     Dates: start: 20220901, end: 20220927
  5. POLATUZUMAB VEDOTIN [Suspect]
     Active Substance: POLATUZUMAB VEDOTIN
     Indication: Diffuse large B-cell lymphoma
     Dosage: UNK,UNKNOWN FREQ
     Route: 065
     Dates: start: 20221025, end: 20221027
  6. CYCLOPHOSPHAMIDE [Suspect]
     Active Substance: CYCLOPHOSPHAMIDE
     Indication: Diffuse large B-cell lymphoma
     Dosage: UNK,UNKNOWN FREQ
     Route: 065
     Dates: start: 20211231, end: 20220426
  7. DOXORUBICIN [Suspect]
     Active Substance: DOXORUBICIN
     Indication: Diffuse large B-cell lymphoma
     Dosage: UNK, UNKNOWN FREQ
     Route: 065
     Dates: start: 20211231, end: 20220426
  8. RITUXIMAB [Suspect]
     Active Substance: RITUXIMAB
     Indication: Diffuse large B-cell lymphoma
     Dosage: UNK,CYCLIC(SECOND CYCLE 01-SEP-2022TO27-SEP-2022)
     Route: 042
     Dates: start: 20211231, end: 20220426
  9. VINCRISTINE [Suspect]
     Active Substance: VINCRISTINE
     Indication: Diffuse large B-cell lymphoma
     Dosage: UNK,UNKNOWN FREQ
     Route: 065
     Dates: start: 20211231, end: 20220426
  10. BENDAMUSTINE HYDROCHLORIDE [Suspect]
     Active Substance: BENDAMUSTINE HYDROCHLORIDE
     Indication: Diffuse large B-cell lymphoma
     Dosage: UNK,CYCLIC
     Route: 042
     Dates: start: 20221025, end: 20221027

REACTIONS (3)
  - Cytokine release syndrome [Unknown]
  - Diffuse large B-cell lymphoma [Unknown]
  - Off label use [Unknown]
